FAERS Safety Report 8927699 (Version 1)
Quarter: 2012Q4

REPORT INFORMATION
  Report Type: 
  Country: US (occurrence: US)
  Receive Date: 20121126
  Receipt Date: 20121126
  Transmission Date: 20130627
  Serious: Yes (Other)
  Sender: FDA-Public Use
  Company Number: US-ASTRAZENECA-2012SE86478

PATIENT
  Age: 88 Year
  Sex: Male

DRUGS (4)
  1. BRILINTA [Suspect]
     Indication: CORONARY ARTERY BYPASS
     Route: 048
  2. CRESTOR [Suspect]
     Route: 048
  3. ASPIRIN [Concomitant]
  4. STATIN DRUG [Concomitant]

REACTIONS (3)
  - Pulmonary oedema [Unknown]
  - Respiratory distress [Unknown]
  - Cardiac failure [Unknown]
